FAERS Safety Report 10275799 (Version 1)
Quarter: 2014Q3

REPORT INFORMATION
  Report Type: Report from Study
  Country: US (occurrence: US)
  Receive Date: 20140703
  Receipt Date: 20140703
  Transmission Date: 20150326
  Serious: Yes (Hospitalization)
  Sender: FDA-Public Use
  Company Number: PHEH2014US012930

PATIENT
  Sex: Male

DRUGS (2)
  1. TICAGRELOR [Suspect]
     Active Substance: TICAGRELOR
     Dosage: UKN
  2. CLOZAPINE. [Suspect]
     Active Substance: CLOZAPINE
     Dosage: UKN

REACTIONS (1)
  - Dyspnoea [Unknown]
